FAERS Safety Report 7365410 (Version 6)
Quarter: 2013Q1

REPORT INFORMATION
  Report Type: Spontaneous
  Country: US (occurrence: US)
  Receive Date: 20100426
  Receipt Date: 20130225
  Transmission Date: 20140127
  Serious: No
  Sender: FDA-Public Use
  Company Number: US-BIOGENIDEC-2010BI013300

PATIENT
  Age: 41 Year
  Sex: Female

DRUGS (2)
  1. TYSABRI [Suspect]
     Indication: MULTIPLE SCLEROSIS
     Route: 042
     Dates: start: 20100311
  2. STEROIDS [NOS] [Concomitant]

REACTIONS (11)
  - Balance disorder [Not Recovered/Not Resolved]
  - Blood cholesterol increased [Recovered/Resolved]
  - Blood cholesterol abnormal [Unknown]
  - Migraine [Recovered/Resolved]
  - Temperature intolerance [Recovered/Resolved]
  - Weight increased [Recovered/Resolved]
  - Nausea [Recovered/Resolved]
  - Multiple sclerosis relapse [Recovered/Resolved]
  - Headache [Recovered/Resolved]
  - Vomiting [Recovered/Resolved]
  - Multiple sclerosis [Unknown]
